FAERS Safety Report 19776889 (Version 5)
Quarter: 2022Q1

REPORT INFORMATION
  Report Type: Spontaneous
  Country: US (occurrence: US)
  Receive Date: 20210901
  Receipt Date: 20220324
  Transmission Date: 20220423
  Serious: Yes (Hospitalization, Other)
  Sender: FDA-Public Use
  Company Number: US-HORIZON THERAPEUTICS-HZN-2021-006171

PATIENT

DRUGS (1)
  1. VIMOVO [Suspect]
     Active Substance: ESOMEPRAZOLE MAGNESIUM\NAPROXEN
     Indication: Osteoarthritis
     Dosage: 1 DOSAGE FORM (500-20MG), BID WITH FOOD
     Route: 048

REACTIONS (13)
  - Limb injury [Unknown]
  - Spinal cord disorder [Unknown]
  - Diabetic ulcer [Unknown]
  - Osteomyelitis [Unknown]
  - Wound complication [Unknown]
  - Drug tolerance [Unknown]
  - Tourette^s disorder [Unknown]
  - Pain [Unknown]
  - Discomfort [Unknown]
  - Therapeutic response unexpected [Unknown]
  - Muscle spasms [Unknown]
  - Incorrect dosage administered [Unknown]
  - Product dose omission issue [Unknown]
